FAERS Safety Report 21832614 (Version 1)
Quarter: 2023Q1

REPORT INFORMATION
  Report Type: Spontaneous
  Country: US (occurrence: US)
  Receive Date: 20230106
  Receipt Date: 20230106
  Transmission Date: 20230418
  Serious: No
  Sender: FDA-Public Use
  Company Number: US-ALLERGAN-2235674US

PATIENT
  Age: 36 Year
  Sex: Female

DRUGS (1)
  1. QULIPTA [Suspect]
     Active Substance: ATOGEPANT
     Indication: Product used for unknown indication
     Dosage: UNK
     Dates: end: 20221024

REACTIONS (4)
  - Product use issue [Unknown]
  - Photophobia [Unknown]
  - Hyperacusis [Unknown]
  - Migraine [Unknown]

NARRATIVE: CASE EVENT DATE: 20221001
